FAERS Safety Report 5216789-8 (Version None)
Quarter: 2007Q1

REPORT INFORMATION
  Report Type: 
  Country: None (occurrence: None)
  Receive Date: 20070118
  Receipt Date: 20070111
  Transmission Date: 20070707
  Serious: Yes (Hospitalization)
  Sender: FDA-Public Use
  Company Number: GXKR2007AU00717

PATIENT
  Age: 78 Year
  Sex: Female

DRUGS (1)
  1. DEXAMETHASONE [Suspect]
     Indication: DRUG USE FOR UNKNOWN INDICATION
     Dosage: HIGH-DOSE

REACTIONS (2)
  - BACTERIAL ABSCESS CENTRAL NERVOUS SYSTEM [None]
  - CITROBACTER INFECTION [None]
